FAERS Safety Report 5580980-1 (Version None)
Quarter: 2007Q4

REPORT INFORMATION
  Report Type: 
  Country: None (occurrence: None)
  Receive Date: 20071130
  Receipt Date: 20070716
  Transmission Date: 20080405
  Serious: No
  Sender: FDA-Public Use
  Company Number: US200707004154

PATIENT
  Sex: Male

DRUGS (2)
  1. BYETTA [Suspect]
     Indication: DIABETES MELLITUS
     Dosage: DAILY (1/D) SUBCUTANEOUS
     Route: 058
     Dates: start: 20060101, end: 20070701
  2. BYETTA [Suspect]
     Indication: DIABETES MELLITUS
     Dosage: DAILY (1/D) SUBCUTANEOUS
     Route: 058
     Dates: start: 20070701

REACTIONS (1)
  - BLOOD GLUCOSE INCREASED [None]
